FAERS Safety Report 10193185 (Version 1)
Quarter: 2014Q2

REPORT INFORMATION
  Report Type: Spontaneous
  Country: US (occurrence: US)
  Receive Date: 20140524
  Receipt Date: 20140524
  Transmission Date: 20141212
  Serious: No
  Sender: FDA-Public Use
  Company Number: US-SA-2014SA011566

PATIENT
  Age: 61 Year
  Sex: Female

DRUGS (4)
  1. LANTUS [Suspect]
     Indication: TYPE 2 DIABETES MELLITUS
     Dosage: DOSE: 76UNITS AM -86 AT PM
     Route: 051
  2. VITAMIN D3 [Concomitant]
     Route: 065
  3. DETROL [Concomitant]
     Route: 065
  4. LIPITOR [Concomitant]
     Dosage: DOSE:2 UNIT(S)

REACTIONS (7)
  - Immune system disorder [Not Recovered/Not Resolved]
  - Staphylococcal infection [Recovered/Resolved]
  - Diarrhoea [Unknown]
  - Ear disorder [Not Recovered/Not Resolved]
  - Gastrointestinal disorder [Unknown]
  - Feeling abnormal [Not Recovered/Not Resolved]
  - Malaise [Not Recovered/Not Resolved]
